FAERS Safety Report 19189321 (Version 1)
Quarter: 2021Q2

REPORT INFORMATION
  Report Type: Spontaneous
  Country: GB (occurrence: GB)
  Receive Date: 20210428
  Receipt Date: 20210428
  Transmission Date: 20210717
  Serious: Yes (Disabling)
  Sender: FDA-Public Use
  Company Number: GB-DRREDDYS-GER/UKI/21/0134720

PATIENT
  Age: 8 Year
  Sex: Male
  Weight: 35 kg

DRUGS (2)
  1. SERETIDE [Concomitant]
     Active Substance: FLUTICASONE PROPIONATE\SALMETEROL XINAFOATE
     Indication: ILL-DEFINED DISORDER
  2. MONTELUKAST [Suspect]
     Active Substance: MONTELUKAST SODIUM
     Indication: ILL-DEFINED DISORDER
     Dosage: 1 5MG TABLET P DAY
     Route: 048
     Dates: start: 20200801, end: 20210420

REACTIONS (7)
  - Panic attack [Unknown]
  - Anxiety [Unknown]
  - Depression [Unknown]
  - Obsessive-compulsive disorder [Unknown]
  - Hyperventilation [Unknown]
  - Nightmare [Unknown]
  - Suicidal ideation [Unknown]

NARRATIVE: CASE EVENT DATE: 20201101
